FAERS Safety Report 7556354-0 (Version None)
Quarter: 2011Q2

REPORT INFORMATION
  Report Type: 
  Country: None (occurrence: None)
  Receive Date: 20110620
  Receipt Date: 20110610
  Transmission Date: 20111010
  Serious: Yes (Hospitalization)
  Sender: FDA-Public Use
  Company Number: US-JNJFOC-20110606106

PATIENT
  Sex: Female

DRUGS (6)
  1. FENTANYL CITRATE [Suspect]
     Indication: PAIN
     Route: 062
  2. LIPITOR [Concomitant]
     Indication: BLOOD CHOLESTEROL
     Route: 048
  3. AMLODIPINE [Concomitant]
     Indication: HYPERTENSION
     Route: 048
  4. FENTANYL-100 [Suspect]
     Route: 062
  5. FENTANYL-100 [Suspect]
     Indication: PAIN
     Route: 062
  6. UNKNOWN MEDICATION [Suspect]
     Indication: PRODUCT USED FOR UNKNOWN INDICATION
     Route: 062

REACTIONS (9)
  - SCOLIOSIS [None]
  - FIBROMYALGIA [None]
  - DYSPNOEA [None]
  - WITHDRAWAL SYNDROME [None]
  - DRUG DOSE OMISSION [None]
  - ADVERSE DRUG REACTION [None]
  - REACTION TO DRUG EXCIPIENTS [None]
  - PANIC ATTACK [None]
  - PNEUMONIA [None]
